FAERS Safety Report 11012585 (Version 1)
Quarter: 2015Q2

REPORT INFORMATION
  Report Type: Spontaneous
  Country: US (occurrence: None)
  Receive Date: 20150410
  Receipt Date: 20150410
  Transmission Date: 20150821
  Serious: Yes (Disabling)
  Sender: FDA-Public Use
  Company Number: None

PATIENT
  Age: 82 Year
  Sex: Male
  Weight: 81.65 kg

DRUGS (11)
  1. D TABLET [Concomitant]
  2. MULTIPLE VITAMIN [Concomitant]
     Active Substance: VITAMINS
  3. CIPROFLOXACIN HCL [Suspect]
     Active Substance: CIPROFLOXACIN HYDROCHLORIDE
     Indication: URINARY TRACT INFECTION
     Dosage: 1 PILL TAKEN BY MOUTH
     Route: 048
  4. BABY ASPIRIN [Concomitant]
     Active Substance: ASPIRIN
  5. B COMPLEX VITAMIN [Concomitant]
  6. AMLODIPINE BESYLATE. [Concomitant]
     Active Substance: AMLODIPINE BESYLATE
  7. TAMSULOSIN [Concomitant]
     Active Substance: TAMSULOSIN
  8. VITAMIN C [Concomitant]
     Active Substance: ASCORBIC ACID
  9. GARLIC TABLET [Concomitant]
  10. CALCIUM [Concomitant]
     Active Substance: CALCIUM
  11. LOSARTAN POTASSIUM. [Concomitant]
     Active Substance: LOSARTAN POTASSIUM

REACTIONS (6)
  - Arthralgia [None]
  - Myalgia [None]
  - Tendon pain [None]
  - Tendonitis [None]
  - Tremor [None]
  - Bone pain [None]

NARRATIVE: CASE EVENT DATE: 20150317
